FAERS Safety Report 14441505 (Version 1)
Quarter: 2018Q1

REPORT INFORMATION
  Report Type: Spontaneous
  Country: US (occurrence: US)
  Receive Date: 20180125
  Receipt Date: 20180125
  Transmission Date: 20180509
  Serious: Yes (Death)
  Sender: FDA-Public Use
  Company Number: US-TEVA-2018-US-850231

PATIENT
  Age: 44 Year
  Sex: Male

DRUGS (11)
  1. BUPRENORPHINE. [Suspect]
     Active Substance: BUPRENORPHINE
     Route: 065
  2. LIPITOR [Concomitant]
     Active Substance: ATORVASTATIN CALCIUM
     Route: 065
  3. ZOFRAN [Concomitant]
     Active Substance: ONDANSETRON HYDROCHLORIDE
     Route: 065
  4. DELTA-9-TETRAHYDROCANNABINOL [Concomitant]
     Active Substance: DRONABINOL
     Route: 065
  5. DILANTIN [Concomitant]
     Active Substance: PHENYTOIN
     Route: 065
  6. ADVIL [Concomitant]
     Active Substance: IBUPROFEN
     Route: 065
  7. XANAX [Suspect]
     Active Substance: ALPRAZOLAM
     Route: 065
  8. NICOTINE. [Concomitant]
     Active Substance: NICOTINE
     Route: 065
  9. CODEINE [Suspect]
     Active Substance: CODEINE
     Route: 065
  10. SEROQUEL [Concomitant]
     Active Substance: QUETIAPINE FUMARATE
     Route: 065
  11. NALOXONE [Concomitant]
     Active Substance: NALOXONE
     Route: 065

REACTIONS (1)
  - Toxicity to various agents [Fatal]
